FAERS Safety Report 7754355-0 (Version None)
Quarter: 2011Q3

REPORT INFORMATION
  Report Type: 
  Country: None (occurrence: None)
  Receive Date: 20110915
  Receipt Date: 20110718
  Transmission Date: 20111222
  Serious: Yes (Hospitalization)
  Sender: FDA-Public Use
  Company Number: PHHY2011US65805

PATIENT
  Age: 43 Year
  Sex: Female

DRUGS (7)
  1. ALDACTONE [Concomitant]
  2. SANDOSTATIN [Suspect]
     Dosage: 200 UG, 3-4 TIMES A DAY
  3. LACTULOSE [Concomitant]
  4. LASIX [Concomitant]
     Indication: OEDEMA
  5. PREDNISOLONE [Concomitant]
     Dosage: 50 MG, BID
  6. DIAZOXIDE [Concomitant]
     Indication: HYPOGLYCAEMIA
  7. SANDOSTATIN LAR [Suspect]
     Indication: HYPOGLYCAEMIA
     Dosage: 30 MG, EVERY 3 WEEKS

REACTIONS (5)
  - HYPOGLYCAEMIA [None]
  - AMMONIA INCREASED [None]
  - SEPSIS [None]
  - ASTHENIA [None]
  - DRUG INEFFECTIVE [None]
